FAERS Safety Report 10484036 (Version 1)
Quarter: 2014Q3

REPORT INFORMATION
  Report Type: Spontaneous
  Country: US (occurrence: None)
  Receive Date: 20140929
  Receipt Date: 20140929
  Transmission Date: 20150326
  Serious: Yes (Life-Threatening, Hospitalization)
  Sender: FDA-Public Use
  Company Number: None

PATIENT
  Age: 65 Year
  Sex: Male
  Weight: 86.9 kg

DRUGS (1)
  1. LISINOPRIL. [Suspect]
     Active Substance: LISINOPRIL
     Indication: HYPERLIPIDAEMIA
     Route: 048
     Dates: start: 19970911, end: 20131111

REACTIONS (2)
  - Angioedema [None]
  - Lip oedema [None]

NARRATIVE: CASE EVENT DATE: 20131211
